FAERS Safety Report 17929481 (Version 1)
Quarter: 2020Q2

REPORT INFORMATION
  Report Type: Spontaneous
  Country: US (occurrence: US)
  Receive Date: 20200623
  Receipt Date: 20200623
  Transmission Date: 20200714
  Serious: No
  Sender: FDA-Public Use
  Company Number: US-ALLERGAN-1922575US

PATIENT
  Age: 3 Decade
  Sex: Female

DRUGS (1)
  1. KYBELLA [Suspect]
     Active Substance: DEOXYCHOLIC ACID
     Indication: LIPOLYSIS PROCEDURE
     Dosage: 1 ML, SINGLE

REACTIONS (3)
  - Injection site pain [Recovered/Resolved]
  - Contusion [Recovered/Resolved]
  - Swelling [Recovered/Resolved]
